FAERS Safety Report 4266983-8 (Version None)
Quarter: 2004Q1

REPORT INFORMATION
  Report Type: 
  Country: None (occurrence: None)
  Receive Date: 20040108
  Receipt Date: 20030617
  Transmission Date: 20041129
  Serious: No
  Sender: FDA-Public Use
  Company Number: US-BRISTOL-MYERS SQUIBB COMPANY-12304580

PATIENT
  Age: 76 Year
  Sex: Female

DRUGS (4)
  1. CORGARD [Suspect]
     Route: 048
  2. LASIX [Concomitant]
  3. CALAN [Concomitant]
  4. K-TAB [Concomitant]

REACTIONS (1)
  - CONSTIPATION [None]
